FAERS Safety Report 9227632 (Version 1)
Quarter: 2013Q2

REPORT INFORMATION
  Report Type: Spontaneous
  Country: US (occurrence: US)
  Receive Date: 20130412
  Receipt Date: 20130412
  Transmission Date: 20140414
  Serious: Yes (Hospitalization, Other)
  Sender: FDA-Public Use
  Company Number: US-ELI_LILLY_AND_COMPANY-US201304003083

PATIENT
  Age: 62 Year
  Sex: Male

DRUGS (2)
  1. EFFIENT [Suspect]
     Indication: STENT PLACEMENT
     Dosage: 60 MG, SINGLE LAODING DOSE
     Route: 048
     Dates: start: 20130319, end: 20130319
  2. EFFIENT [Suspect]
     Dosage: 10 MG, QD
     Route: 048
     Dates: start: 20130320, end: 20130405

REACTIONS (2)
  - Gastrointestinal ulcer [Unknown]
  - Gastrointestinal haemorrhage [Unknown]
